FAERS Safety Report 7705397-2 (Version None)
Quarter: 2011Q3

REPORT INFORMATION
  Report Type: 
  Country: None (occurrence: None)
  Receive Date: 20110824
  Receipt Date: 20110811
  Transmission Date: 20111222
  Serious: Yes (Hospitalization)
  Sender: FDA-Public Use
  Company Number: FR-UCBSA-039081

PATIENT
  Age: 27 Year
  Sex: Male

DRUGS (3)
  1. KEPPRA [Suspect]
     Indication: EPILEPSY
     Route: 048
     Dates: start: 20101210, end: 20110308
  2. BECILAN [Concomitant]
     Dosage: LONG TIME TREATMENT
     Route: 048
  3. TROVOLOL [Concomitant]
     Dosage: LONG TIME TREATMENT
     Route: 048

REACTIONS (2)
  - DEPRESSION [None]
  - PSYCHOMOTOR SKILLS IMPAIRED [None]
